FAERS Safety Report 14511115 (Version 2)
Quarter: 2018Q1

REPORT INFORMATION
  Report Type: Spontaneous
  Country: FR (occurrence: FR)
  Receive Date: 20180209
  Receipt Date: 20180222
  Transmission Date: 20180509
  Serious: Yes (Congenital Anomaly, Other)
  Sender: FDA-Public Use
  Company Number: FR-ABBVIE-18P-056-2250261-00

PATIENT
  Sex: Female

DRUGS (1)
  1. DEPAKINE [Suspect]
     Active Substance: VALPROATE SODIUM
     Indication: MATERNAL EXPOSURE TIMING UNSPECIFIED
     Route: 064
     Dates: start: 19981227, end: 199908

REACTIONS (19)
  - Foetal growth restriction [Unknown]
  - Varicella [Unknown]
  - Multiple congenital abnormalities [Unknown]
  - Prognathism [Unknown]
  - Thyroiditis [Unknown]
  - Dysmorphism [Unknown]
  - Heterophoria [Unknown]
  - Joint laxity [Unknown]
  - Nasopharyngitis [Unknown]
  - Appendicectomy [Unknown]
  - Abdominal pain [Unknown]
  - Scoliosis [Unknown]
  - Sympathicotonia [Unknown]
  - Tonsillar disorder [Unknown]
  - Joint dislocation [Unknown]
  - Foetal exposure during pregnancy [Unknown]
  - Otitis media [Unknown]
  - Gait disturbance [Unknown]
  - Drug intolerance [Unknown]

NARRATIVE: CASE EVENT DATE: 19981227
